FAERS Safety Report 21516568 (Version 2)
Quarter: 2022Q4

REPORT INFORMATION
  Report Type: Spontaneous
  Country: US (occurrence: US)
  Receive Date: 20221027
  Receipt Date: 20221104
  Transmission Date: 20230113
  Serious: Yes (Hospitalization, Other)
  Sender: FDA-Public Use
  Company Number: US-ADVANZ PHARMA-202210006958

PATIENT

DRUGS (3)
  1. HYDROXYCHLOROQUINE [Suspect]
     Active Substance: HYDROXYCHLOROQUINE
     Indication: Systemic lupus erythematosus
     Dosage: UNK
     Route: 065
  2. PREDNISONE [Suspect]
     Active Substance: PREDNISONE
     Indication: Systemic lupus erythematosus
     Dosage: UNK
     Route: 065
  3. MYCOPHENOLATE MOFETIL [Suspect]
     Active Substance: MYCOPHENOLATE MOFETIL
     Indication: Systemic lupus erythematosus
     Dosage: UNK
     Route: 065

REACTIONS (6)
  - Pneumonia cryptococcal [Recovering/Resolving]
  - Disseminated cryptococcosis [Recovering/Resolving]
  - Pulmonary mass [Recovering/Resolving]
  - Lung infiltration [Recovering/Resolving]
  - Skin abrasion [Recovering/Resolving]
  - Cryptococcosis [Recovering/Resolving]
